FAERS Safety Report 14246516 (Version 1)
Quarter: 2017Q4

REPORT INFORMATION
  Report Type: Report from Study
  Country: IN (occurrence: IN)
  Receive Date: 20171204
  Receipt Date: 20171204
  Transmission Date: 20180321
  Serious: Yes (Other)
  Sender: FDA-Public Use
  Company Number: PHHY2017IN174659

PATIENT
  Sex: Male

DRUGS (2)
  1. SCAPHO [Suspect]
     Active Substance: SECUKINUMAB
     Dosage: 150 MG, QMO (7TH DOSE)
     Route: 058
     Dates: start: 20170923
  2. SCAPHO [Suspect]
     Active Substance: SECUKINUMAB
     Indication: PSORIATIC ARTHROPATHY
     Dosage: 150 MG, QW (1ST DOSE)
     Route: 058
     Dates: start: 20170620

REACTIONS (3)
  - Flatulence [Unknown]
  - Onychalgia [Recovering/Resolving]
  - Gastric infection [Unknown]
